FAERS Safety Report 24262372 (Version 4)
Quarter: 2024Q4

REPORT INFORMATION
  Report Type: Spontaneous
  Country: US (occurrence: US)
  Receive Date: 20240829
  Receipt Date: 20241206
  Transmission Date: 20250115
  Serious: No
  Sender: BIOGEN
  Company Number: US-BIOGEN-2024BI01279852

PATIENT
  Sex: Female

DRUGS (3)
  1. VUMERITY [Suspect]
     Active Substance: DIROXIMEL FUMARATE
     Indication: Multiple sclerosis
     Dosage: TAKE 1 CAPSULE (231MG) BY MOUTH TWICE DAILY FOR THE FIRST 7 DAYS, THEN TAKE 2 CAPSULES (462MG) TW...
     Route: 050
     Dates: start: 2024
  2. VUMERITY [Suspect]
     Active Substance: DIROXIMEL FUMARATE
     Dosage: TAKE 2 CAPSULES (462MG) BY MOUTH TWICE DAILY. DO NOT TAKE WITH HIGH FAT MEAL
     Route: 050
     Dates: start: 20240813
  3. VITAMIN D BOOSTER [Concomitant]
     Route: 050

REACTIONS (3)
  - Multiple sclerosis relapse [Unknown]
  - Dry mouth [Unknown]
  - Toothache [Unknown]

NARRATIVE: CASE EVENT DATE: 20240101
